FAERS Safety Report 5094638-9 (Version None)
Quarter: 2006Q3

REPORT INFORMATION
  Report Type: 
  Country: None (occurrence: None)
  Receive Date: 20060830
  Receipt Date: 20060816
  Transmission Date: 20061208
  Serious: Yes (Death, Other)
  Sender: FDA-Public Use
  Company Number: US200607000711

PATIENT
  Age: 41 Year
  Sex: Female
  Weight: 108.8 kg

DRUGS (1)
  1. ZYPREXA [Suspect]

REACTIONS (4)
  - CORONARY ARTERY DISEASE [None]
  - DIABETES MELLITUS [None]
  - EMPHYSEMA [None]
  - MYOCARDIAL INFARCTION [None]
